FAERS Safety Report 7623799 (Version 8)
Quarter: 2013Q2

REPORT INFORMATION
  Report Type: Report from Study
  Country: ES (occurrence: ES)
  Receive Date: 20101011
  Receipt Date: 20130409
  Transmission Date: 20140414
  Serious: Yes (Disabling)
  Sender: FDA-Public Use
  Company Number: PHHO2010ES14880

PATIENT
  Age: 48 Year
  Sex: Female

DRUGS (3)
  1. FTY 720 [Suspect]
     Indication: MULTIPLE SCLEROSIS
     Dosage: DOSE BLINDED
     Route: 048
     Dates: start: 20040903, end: 20100209
  2. FTY 720 [Suspect]
     Dosage: 0.5 MG
     Route: 048
     Dates: start: 20100210, end: 20100929
  3. ESCITALOPRAM [Concomitant]
     Indication: DEPRESSION
     Dosage: 5 MG, UNK
     Dates: start: 20080924, end: 20100802

REACTIONS (3)
  - Retinal vein thrombosis [Recovered/Resolved with Sequelae]
  - Visual acuity reduced [Recovered/Resolved with Sequelae]
  - Macular oedema [Recovered/Resolved with Sequelae]
